FAERS Safety Report 7763226-5 (Version None)
Quarter: 2011Q3

REPORT INFORMATION
  Report Type: 
  Country: None (occurrence: None)
  Receive Date: 20110920
  Receipt Date: 20110915
  Transmission Date: 20111222
  Serious: Yes (Death, Disabling)
  Sender: FDA-Public Use
  Company Number: PHHO2011US07540

PATIENT
  Sex: Male

DRUGS (7)
  1. ASPIRIN [Concomitant]
  2. TOPROL-XL [Concomitant]
  3. GLEEVEC [Suspect]
     Indication: CHRONIC MYELOID LEUKAEMIA
     Dosage: 400 MG, QD
     Route: 048
     Dates: start: 20010426
  4. CARDURA [Concomitant]
  5. XANAX [Concomitant]
  6. LEXAPRO [Concomitant]
  7. CEPHRADINE [Concomitant]

REACTIONS (1)
  - AMYOTROPHIC LATERAL SCLEROSIS [None]
